FAERS Safety Report 10270361 (Version 1)
Quarter: 2014Q3

REPORT INFORMATION
  Report Type: Spontaneous
  Country: US (occurrence: US)
  Receive Date: 20140701
  Receipt Date: 20140701
  Transmission Date: 20150326
  Serious: No
  Sender: FDA-Public Use
  Company Number: US-ASTRAZENECA-2014SE45695

PATIENT
  Age: 72 Year
  Sex: Female

DRUGS (8)
  1. MULTIVITAMINS [Concomitant]
     Active Substance: VITAMINS
  2. ALBUTEROL. [Concomitant]
     Active Substance: ALBUTEROL
  3. PULMICORT FLEXHALER [Suspect]
     Active Substance: BUDESONIDE
     Indication: COUGH
     Dosage: 180MCG 2 PUFFS BID
     Route: 055
     Dates: start: 20140616
  4. AMLODIPINE [Concomitant]
     Active Substance: AMLODIPINE BESYLATE
  5. ASPRIN [Concomitant]
     Active Substance: ASPIRIN
  6. METOPROLOL [Suspect]
     Active Substance: METOPROLOL
     Route: 065
  7. DIOVAN [Concomitant]
     Active Substance: VALSARTAN
  8. LASIX [Concomitant]
     Active Substance: FUROSEMIDE

REACTIONS (2)
  - Rash [Unknown]
  - Off label use [Unknown]
